FAERS Safety Report 11136051 (Version 2)
Quarter: 2015Q2

REPORT INFORMATION
  Report Type: Other
  Country: MX (occurrence: MX)
  Receive Date: 20150526
  Receipt Date: 20150601
  Transmission Date: 20150821
  Serious: Yes (Death, Hospitalization, Other)
  Sender: FDA-Public Use
  Company Number: MX-SHIRE-MX201504502

PATIENT
  Age: 10 Year
  Sex: Male
  Weight: 31 kg

DRUGS (1)
  1. ELAPRASE [Suspect]
     Active Substance: IDURSULFASE
     Indication: MUCOPOLYSACCHARIDOSIS II
     Dosage: 18 MG, 1X/WEEK, 3 VIALS WEEKLY
     Route: 041
     Dates: start: 20140529

REACTIONS (6)
  - Liver injury [Unknown]
  - Bacterial infection [Fatal]
  - Haemorrhage intracranial [Unknown]
  - Endocarditis bacterial [Fatal]
  - Renal injury [Unknown]
  - Brain death [Not Recovered/Not Resolved]

NARRATIVE: CASE EVENT DATE: 20141128
